FAERS Safety Report 9511827 (Version 2)
Quarter: 2013Q3

REPORT INFORMATION
  Report Type: Spontaneous
  Country: US (occurrence: ES)
  Receive Date: 20130910
  Receipt Date: 20130918
  Transmission Date: 20140515
  Serious: Yes (Death, Life-Threatening, Hospitalization)
  Sender: FDA-Public Use
  Company Number: ES-FRI-1000048495

PATIENT
  Age: 72 Year
  Sex: Male
  Weight: 90 kg

DRUGS (4)
  1. CEFTAROLINE FOSAMIL [Suspect]
     Dosage: 800 MG
     Route: 042
     Dates: start: 20130816
  2. DAPTOMYCIN [Concomitant]
     Indication: ENDOCARDITIS
     Dosage: 425 MG
     Route: 042
     Dates: start: 20130712, end: 20130830
  3. PIPERACILLIN - TAZOBACTAM [Concomitant]
     Indication: SEPSIS
     Dosage: C/6 H, 8 G
     Route: 042
     Dates: start: 20130812, end: 20130816
  4. ENDOVASCULAR RADIOGRAPHIC CONTRAST [Concomitant]

REACTIONS (3)
  - Abdominal sepsis [Fatal]
  - Renal failure acute [Fatal]
  - Multi-organ failure [Fatal]
